FAERS Safety Report 23987519 (Version 1)
Quarter: 2024Q2

REPORT INFORMATION
  Report Type: Report from Study
  Country: CA (occurrence: CA)
  Receive Date: 20240618
  Receipt Date: 20240618
  Transmission Date: 20240716
  Serious: Yes (Congenital Anomaly)
  Sender: FDA-Public Use
  Company Number: CA-JNJFOC-20230428634

PATIENT
  Age: 1 Decade
  Sex: Male
  Weight: 3.535 kg

DRUGS (1)
  1. REMICADE [Suspect]
     Active Substance: INFLIXIMAB
     Indication: Product used for unknown indication
     Route: 063

REACTIONS (2)
  - Thyroglossal cyst infection [Not Recovered/Not Resolved]
  - Exposure via breast milk [Unknown]
